FAERS Safety Report 6833496-6 (Version None)
Quarter: 2010Q3

REPORT INFORMATION
  Report Type: 
  Country: None (occurrence: None)
  Receive Date: 20100712
  Receipt Date: 20070323
  Transmission Date: 20110219
  Serious: No
  Sender: FDA-Public Use
  Company Number: US-PFIZER INC-2007025151

PATIENT
  Sex: Female
  Weight: 44.91 kg

DRUGS (4)
  1. CHANTIX [Suspect]
     Indication: SMOKING CESSATION THERAPY
     Dates: start: 20070201
  2. ADVICOR [Concomitant]
  3. KLONOPIN [Concomitant]
  4. LORTAB [Concomitant]
     Indication: PAIN

REACTIONS (4)
  - COUGH [None]
  - INCREASED APPETITE [None]
  - NAUSEA [None]
  - WEIGHT INCREASED [None]
